FAERS Safety Report 12402904 (Version 1)
Quarter: 2016Q2

REPORT INFORMATION
  Report Type: Spontaneous
  Country: US (occurrence: US)
  Receive Date: 20160525
  Receipt Date: 20160525
  Transmission Date: 20160815
  Serious: Yes (Other)
  Sender: FDA-Public Use
  Company Number: US-PFIZER INC-2016259973

PATIENT
  Age: 73 Year
  Sex: Female

DRUGS (1)
  1. LATANOPROST. [Suspect]
     Active Substance: LATANOPROST
     Dosage: UNK
     Dates: start: 20160208, end: 20160311

REACTIONS (20)
  - Skin exfoliation [Unknown]
  - Peripheral swelling [Recovering/Resolving]
  - Rash [Unknown]
  - Joint swelling [Unknown]
  - Peripheral swelling [Recovered/Resolved]
  - Acne [Recovered/Resolved]
  - Rash generalised [Unknown]
  - Feeding disorder [Recovered/Resolved]
  - Skin ulcer [Unknown]
  - Swelling face [Recovered/Resolved]
  - Joint swelling [Unknown]
  - Generalised erythema [Not Recovered/Not Resolved]
  - Skin disorder [Unknown]
  - Rash [Unknown]
  - Dizziness [Recovered/Resolved]
  - Weight decreased [Unknown]
  - Vomiting [Recovered/Resolved]
  - Swelling [Unknown]
  - Rash pruritic [Unknown]
  - Abdominal pain upper [Unknown]

NARRATIVE: CASE EVENT DATE: 20160213
